FAERS Safety Report 9670825 (Version 2)
Quarter: 2014Q2

REPORT INFORMATION
  Report Type: Spontaneous
  Country: FR (occurrence: FR)
  Receive Date: 20131106
  Receipt Date: 20140612
  Transmission Date: 20141212
  Serious: Yes (Hospitalization, Other)
  Sender: FDA-Public Use
  Company Number: FR-009507513-1310FRA014289

PATIENT
  Age: 39 Year
  Sex: Male

DRUGS (13)
  1. ISENTRESS [Suspect]
     Indication: HIV INFECTION
     Dosage: 1 DF, BID
     Route: 048
     Dates: start: 20080905
  2. KALETRA [Suspect]
     Indication: HIV INFECTION
     Dosage: UNK
     Dates: start: 20030416, end: 20121121
  3. FLUOXETIN BASE [Suspect]
     Indication: PRODUCT USED FOR UNKNOWN INDICATION
     Dosage: 1 DF, QD
     Route: 048
     Dates: start: 2010
  4. PREZISTA [Suspect]
     Dosage: 800 MG, QD
     Route: 048
     Dates: start: 20121121
  5. NORVIR [Suspect]
     Indication: HIV INFECTION
     Dosage: 100 MG, QD
     Route: 048
     Dates: start: 20121121
  6. UVEDOSE [Concomitant]
     Dosage: UNK
     Dates: start: 20091218
  7. ZINNAT [Concomitant]
     Dosage: UNK
     Dates: start: 20100219, end: 20100430
  8. CYMBALTA [Concomitant]
     Dosage: UNK
     Dates: start: 20110816, end: 20120425
  9. LAROXYL [Concomitant]
     Dosage: UNK
     Dates: start: 20110816, end: 20120926
  10. LIPANTHYL [Concomitant]
     Dosage: UNK
     Dates: start: 20110816, end: 20120926
  11. ESOMEPRAZOLE [Concomitant]
     Dosage: UNK
     Dates: start: 20130125
  12. LYRICA [Concomitant]
     Dosage: UNK
     Dates: start: 20130125
  13. OXYCONTIN [Concomitant]
     Dosage: UNK
     Dates: start: 20130125

REACTIONS (1)
  - Pancreatitis relapsing [Recovered/Resolved]
